FAERS Safety Report 5202836-6 (Version None)
Quarter: 2006Q4

REPORT INFORMATION
  Report Type: 
  Country: None (occurrence: None)
  Receive Date: 20061018
  Receipt Date: 20060612
  Transmission Date: 20070319
  Serious: Yes (Life-Threatening, Hospitalization)
  Sender: FDA-Public Use
  Company Number: PHEH2006US07653

PATIENT
  Sex: Male

DRUGS (2)
  1. ZOMETA [Suspect]
     Indication: PROSTATE CANCER METASTATIC
  2. FLEET PHOSPHO-SODA (SODIUM PHOSPHATE MONOBASIC (ANHYDRATE)) [Suspect]
     Indication: COLONOSCOPY

REACTIONS (2)
  - COLONOSCOPY [None]
  - HYPOCALCAEMIA [None]
